FAERS Safety Report 18337053 (Version 1)
Quarter: 2020Q4

REPORT INFORMATION
  Report Type: Report from Study
  Country: CA (occurrence: CA)
  Receive Date: 20201002
  Receipt Date: 20201002
  Transmission Date: 20210113
  Serious: Yes (Other)
  Sender: FDA-Public Use
  Company Number: CA-ORION CORPORATION ORION PHARMA-20_00011091

PATIENT
  Age: 80 Year
  Sex: Female

DRUGS (9)
  1. LEFLUNOMIDE. [Concomitant]
     Active Substance: LEFLUNOMIDE
     Route: 065
  2. SULFASALAZINE. [Concomitant]
     Active Substance: SULFASALAZINE
     Route: 065
  3. ERELZI [Suspect]
     Active Substance: ETANERCEPT-SZZS
     Indication: RHEUMATOID ARTHRITIS
     Route: 058
  4. PLAQUENIL [Concomitant]
     Active Substance: HYDROXYCHLOROQUINE SULFATE
     Route: 065
  5. DESOXIMETASONE. [Concomitant]
     Active Substance: DESOXIMETASONE
     Route: 058
  6. DICLOFENAC [Concomitant]
     Active Substance: DICLOFENAC
     Route: 061
  7. METHOTREXATE (TRADE NAME UNKNOWN) [Suspect]
     Active Substance: METHOTREXATE
     Indication: PRODUCT USED FOR UNKNOWN INDICATION
     Route: 065
  8. DICLOFENAC [Concomitant]
     Active Substance: DICLOFENAC
     Route: 065
  9. PREDNISONE. [Concomitant]
     Active Substance: PREDNISONE
     Route: 065

REACTIONS (18)
  - Bronchitis [Not Recovered/Not Resolved]
  - Lung neoplasm malignant [Not Recovered/Not Resolved]
  - Oropharyngeal pain [Not Recovered/Not Resolved]
  - Bone density abnormal [Not Recovered/Not Resolved]
  - Bone pain [Not Recovered/Not Resolved]
  - Dyspnoea [Not Recovered/Not Resolved]
  - Osteoarthritis [Not Recovered/Not Resolved]
  - Sputum discoloured [Not Recovered/Not Resolved]
  - Chronic obstructive pulmonary disease [Not Recovered/Not Resolved]
  - Peripheral swelling [Not Recovered/Not Resolved]
  - Sinusitis [Not Recovered/Not Resolved]
  - Drug ineffective [Not Recovered/Not Resolved]
  - Ear infection [Not Recovered/Not Resolved]
  - Influenza [Not Recovered/Not Resolved]
  - Pneumonia [Not Recovered/Not Resolved]
  - Rheumatoid arthritis [Not Recovered/Not Resolved]
  - Cough [Not Recovered/Not Resolved]
  - Pain in extremity [Not Recovered/Not Resolved]
